FAERS Safety Report 21351165 (Version 1)
Quarter: 2022Q3

REPORT INFORMATION
  Report Type: Spontaneous
  Country: US (occurrence: US)
  Receive Date: 20220919
  Receipt Date: 20220919
  Transmission Date: 20221027
  Serious: Yes (Hospitalization)
  Sender: FDA-Public Use
  Company Number: US-Aadi Bioscience, Inc-2022-AAD-00309

PATIENT
  Age: 46 Year
  Sex: Female

DRUGS (1)
  1. FYARRO [Suspect]
     Active Substance: SIROLIMUS
     Indication: Perivascular epithelioid cell tumour
     Dosage: OVER 30 MINUTES ON DAYS 1 AND 8 OF A 21-DAY CYCLE.
     Route: 042
     Dates: start: 20220602

REACTIONS (2)
  - Urinary tract infection bacterial [Unknown]
  - Staphylococcal sepsis [Unknown]

NARRATIVE: CASE EVENT DATE: 20220609
